FAERS Safety Report 7020789-5 (Version None)
Quarter: 2010Q3

REPORT INFORMATION
  Report Type: 
  Country: None (occurrence: None)
  Receive Date: 20100929
  Receipt Date: 20100920
  Transmission Date: 20110219
  Serious: Yes (Other)
  Sender: FDA-Public Use
  Company Number: BE-PFIZER INC-2010119134

PATIENT
  Sex: Female

DRUGS (3)
  1. SOSTILAR [Suspect]
     Dosage: UNK
     Route: 048
  2. ZOCOR [Concomitant]
     Dosage: UNK
  3. LEVOTHYROXINE SODIUM [Concomitant]
     Dosage: UNK

REACTIONS (4)
  - AMNESIA [None]
  - BURSITIS [None]
  - HYPERTENSION [None]
  - JOINT STIFFNESS [None]
